FAERS Safety Report 8271060 (Version 4)
Quarter: 2013Q4

REPORT INFORMATION
  Report Type: Spontaneous
  Country: GB (occurrence: GB)
  Receive Date: 20111201
  Receipt Date: 20131003
  Transmission Date: 20140711
  Serious: Yes (Other)
  Sender: FDA-Public Use
  Company Number: GB-009507513-1111GBR00127

PATIENT
  Age: 40 Year
  Sex: Female

DRUGS (1)
  1. MAXALT 5MG TABLETS [Suspect]
     Indication: MIGRAINE PROPHYLAXIS
     Route: 048
     Dates: start: 2001

REACTIONS (2)
  - Retinal detachment [Not Recovered/Not Resolved]
  - Retinal tear [Not Recovered/Not Resolved]
